FAERS Safety Report 17136874 (Version 1)
Quarter: 2019Q4

REPORT INFORMATION
  Report Type: Report from Study
  Country: IT (occurrence: IT)
  Receive Date: 20191210
  Receipt Date: 20191210
  Transmission Date: 20200122
  Serious: Yes (Other)
  Sender: FDA-Public Use
  Company Number: IT-MYLANLABS-2019M1086977

PATIENT
  Age: 62 Year
  Sex: Female

DRUGS (3)
  1. LEVOFLOXACIN. [Suspect]
     Active Substance: LEVOFLOXACIN
     Indication: TRACHEITIS
     Dosage: 1 DOSAGE FORM, QD
     Dates: start: 20190128, end: 20190205
  2. ANSIMAR [Suspect]
     Active Substance: DOXOFYLLINE
     Indication: TRACHEITIS
     Dosage: 1 DOSAGE FORM, QD
     Route: 048
     Dates: start: 20190201
  3. MIRAPEXIN [Concomitant]
     Active Substance: PRAMIPEXOLE
     Indication: PRODUCT USED FOR UNKNOWN INDICATION
     Dosage: UNK

REACTIONS (2)
  - Pruritus [Recovering/Resolving]
  - Off label use [Recovering/Resolving]

NARRATIVE: CASE EVENT DATE: 20190205
